FAERS Safety Report 21304306 (Version 1)
Quarter: 2022Q3

REPORT INFORMATION
  Report Type: Spontaneous
  Country: US (occurrence: None)
  Receive Date: 20220907
  Receipt Date: 20220907
  Transmission Date: 20221027
  Serious: No
  Sender: FDA-Public Use
  Company Number: US-ARIS GLOBAL-202107-1226

PATIENT
  Age: 64 Year
  Sex: Male

DRUGS (7)
  1. OXERVATE [Suspect]
     Active Substance: CENEGERMIN-BKBJ
     Indication: Neurotrophic keratopathy
     Route: 047
     Dates: start: 20210712
  2. VITAMINS [Concomitant]
     Active Substance: VITAMINS
     Dosage: GUMMIES
  3. ROGAINE [Concomitant]
     Active Substance: MINOXIDIL
  4. MOTRIN IB [Concomitant]
     Active Substance: IBUPROFEN
  5. TYLENOL EXTRA STRENGTH [Concomitant]
     Active Substance: ACETAMINOPHEN
  6. KRILL OIL [Concomitant]
     Active Substance: DIETARY SUPPLEMENT\KRILL OIL
  7. PROLENSA [Concomitant]
     Active Substance: BROMFENAC SODIUM

REACTIONS (3)
  - Eye swelling [Recovering/Resolving]
  - Eye pain [Recovering/Resolving]
  - Ocular hyperaemia [Recovering/Resolving]

NARRATIVE: CASE EVENT DATE: 20210701
